FAERS Safety Report 6059055-3 (Version None)
Quarter: 2009Q1

REPORT INFORMATION
  Report Type: 
  Country: None (occurrence: None)
  Receive Date: 20090130
  Receipt Date: 20090119
  Transmission Date: 20090719
  Serious: Yes (Hospitalization)
  Sender: FDA-Public Use
  Company Number: B0554964A

PATIENT
  Age: 60 Year
  Sex: Female

DRUGS (4)
  1. ZOPHREN [Suspect]
     Indication: PROPHYLAXIS
     Route: 042
     Dates: start: 20080827, end: 20080827
  2. TAXOL [Suspect]
     Indication: CHEMOTHERAPY
     Route: 042
     Dates: start: 20080827, end: 20080827
  3. SOLU-MEDROL [Suspect]
     Route: 042
     Dates: start: 20080827, end: 20080827
  4. POLARAMINE [Suspect]
     Route: 042
     Dates: start: 20080827, end: 20080827

REACTIONS (4)
  - DRUG HYPERSENSITIVITY [None]
  - DYSPNOEA [None]
  - ERYTHEMA [None]
  - OROPHARYNGEAL DISCOMFORT [None]
